FAERS Safety Report 16664880 (Version 1)
Quarter: 2019Q3

REPORT INFORMATION
  Report Type: Spontaneous
  Country: US (occurrence: US)
  Receive Date: 20190803
  Receipt Date: 20190803
  Transmission Date: 20191004
  Serious: Yes (Other)
  Sender: FDA-Public Use
  Company Number: US-ACCORD-069570

PATIENT
  Age: 66 Year
  Sex: Female

DRUGS (8)
  1. METOPROLOL. [Concomitant]
     Active Substance: METOPROLOL
     Dates: start: 201101, end: 201712
  2. TRIAMTERENE. [Concomitant]
     Active Substance: TRIAMTERENE
     Dates: start: 201101, end: 201705
  3. KLONOPIN [Concomitant]
     Active Substance: CLONAZEPAM
     Dates: start: 200101
  4. GABAPENTIN. [Concomitant]
     Active Substance: GABAPENTIN
     Dates: start: 201607
  5. FENOFIBRATE. [Concomitant]
     Active Substance: FENOFIBRATE
     Dates: start: 200101
  6. AMLODIPINE [Concomitant]
     Active Substance: AMLODIPINE BESYLATE
     Dates: start: 201609
  7. DOCETAXEL ACCORD [Suspect]
     Active Substance: DOCETAXEL
     Indication: BREAST CANCER
     Dates: start: 20160211, end: 20160526
  8. PARAPLATIN [Suspect]
     Active Substance: CARBOPLATIN
     Indication: BREAST CANCER

REACTIONS (1)
  - Alopecia [Not Recovered/Not Resolved]
